FAERS Safety Report 20904209 (Version 2)
Quarter: 2022Q2

REPORT INFORMATION
  Report Type: Other
  Country: ES (occurrence: ES)
  Receive Date: 20220602
  Receipt Date: 20220606
  Transmission Date: 20220721
  Serious: Yes (Hospitalization, Other)
  Sender: FDA-Public Use
  Company Number: ES-002147023-NVSC2022ES114593

PATIENT
  Age: 47 Year
  Sex: Male

DRUGS (4)
  1. RITUXAN [Suspect]
     Active Substance: RITUXIMAB
     Indication: Follicular lymphoma
     Dosage: 375 MG/M2, DAY 1 (ONCE EVERY 21 DAYS, COMPLETING SIX CYCLES)
     Route: 065
     Dates: start: 202004, end: 202008
  2. RITUXAN [Suspect]
     Active Substance: RITUXIMAB
     Dosage: 375 MG/M2, Q2MO (MAINTENANCE TREATMENT)
     Route: 065
     Dates: start: 202010
  3. RITUXAN [Suspect]
     Active Substance: RITUXIMAB
     Dosage: 6TH DOSE
     Route: 065
     Dates: start: 20211001
  4. RITUXAN [Suspect]
     Active Substance: RITUXIMAB
     Dosage: 4TH DOSE
     Route: 065
     Dates: start: 202105

REACTIONS (2)
  - COVID-19 [Recovering/Resolving]
  - Vaccination failure [Unknown]
